FAERS Safety Report 18972056 (Version 2)
Quarter: 2021Q1

REPORT INFORMATION
  Report Type: Report from Study
  Country: DE (occurrence: DE)
  Receive Date: 20210305
  Receipt Date: 20210326
  Transmission Date: 20210420
  Serious: Yes (Hospitalization)
  Sender: FDA-Public Use
  Company Number: DE-BRISTOL-MYERS SQUIBB COMPANY-BMS-2020-087835

PATIENT
  Age: 71 Year
  Sex: Female
  Weight: 55 kg

DRUGS (4)
  1. ADDEL TRACE [Suspect]
     Active Substance: ELECTROLYTES NOS\MINERALS
     Indication: PARENTERAL NUTRITION
     Dosage: 10 MILLILITER, QD, ROUTE: CENTRAL VENOUS: INFUSION RATE: 92 ML/H
     Route: 042
     Dates: start: 20200918
  2. OLIMEL [Suspect]
     Active Substance: AMINO ACIDS\DEXTROSE\SOYBEAN OIL
     Indication: PARENTERAL NUTRITION
     Dosage: 1500 MILLILITER, QD, ROUTE: CENTRAL VENOUS; INFUSION RATE INCREASED FROM 72ML/H TO 92ML/H
     Route: 042
     Dates: start: 20200918
  3. APIXABAN [Suspect]
     Active Substance: APIXABAN
     Indication: ANTICOAGULANT THERAPY
     Dosage: UNK
     Route: 048
     Dates: end: 202010
  4. CERNEVIT [Suspect]
     Active Substance: VITAMINS
     Indication: PARENTERAL NUTRITION
     Dosage: 10 MILLILITER, QD, ROUTE: CENTRAL VENOUS: INFUSION RATE: 92ML/H
     Route: 042
     Dates: start: 20200918

REACTIONS (5)
  - Extravasation [Recovered/Resolved]
  - Rash [Recovered/Resolved]
  - General physical health deterioration [Not Recovered/Not Resolved]
  - Nausea [Recovered/Resolved]
  - Sciatica [Not Recovered/Not Resolved]

NARRATIVE: CASE EVENT DATE: 202010
